FAERS Safety Report 8814130 (Version 1)
Quarter: 2012Q4

REPORT INFORMATION
  Report Type: Spontaneous
  Country: US (occurrence: None)
  Receive Date: 20120925
  Receipt Date: 20120925
  Transmission Date: 20130627
  Serious: Yes (Other)
  Sender: FDA-Public Use
  Company Number: FK201202696

PATIENT
  Age: 57 Year
  Sex: Male

DRUGS (14)
  1. AMIODARONE [Suspect]
     Indication: ATRIAL FIBRILLATION
     Dosage: over a period of 10 minutes
     Route: 042
  2. AMIODARONE [Suspect]
     Indication: ATRIAL FIBRILLATION
     Dosage: 1 mg/min for 6 hours
     Route: 042
  3. AMIODARONE [Suspect]
     Indication: ATRIAL FIBRILLATION
     Dosage: 0.5 mg/min
     Route: 042
  4. AMIODARONE [Suspect]
     Indication: ATRIAL FIBRILLATION
     Route: 048
  5. PHENYLEPHRINE (PHENYLEPHRINE) [Concomitant]
  6. VANCOMYCIN (VANCOMYCIN) [Concomitant]
  7. N-ACETYLCYSTINE (ACETYLCYSTEINE) [Concomitant]
  8. BICARBONATE (SODIUM BICARBONATE) [Concomitant]
  9. METOPROLOL (METOPROLOL) [Concomitant]
  10. PIPERACILLIN /TAZOBACTAM (PIPERACILLIN W/TAZOBACTAM) [Concomitant]
  11. RANITIDINE (RANITIDINE) [Concomitant]
  12. VASOPRESSIN (VASOPRESSIN INJECTION) [Concomitant]
  13. FUROSEMIDE (FUROSEMIDE) [Concomitant]
  14. NOREPINEPHRINE (NOREPINEPHRINE) [Concomitant]

REACTIONS (15)
  - Hepatotoxicity [None]
  - Hypotension [None]
  - Hypoventilation [None]
  - Urine output decreased [None]
  - Blood lactic acid increased [None]
  - International normalised ratio increased [None]
  - Acute hepatic failure [None]
  - Ischaemia [None]
  - Infection [None]
  - Rhabdomyolysis [None]
  - Mental status changes [None]
  - Vomiting [None]
  - Atrial fibrillation [None]
  - Atrial flutter [None]
  - Dysphagia [None]
